FAERS Safety Report 26204264 (Version 1)
Quarter: 2025Q4

REPORT INFORMATION
  Report Type: Spontaneous
  Country: GB (occurrence: GB)
  Receive Date: 20251226
  Receipt Date: 20251226
  Transmission Date: 20260118
  Serious: Yes (Other)
  Sender: GALPHARM INTERNATIONAL
  Company Number: None

PATIENT

DRUGS (2)
  1. NAPROXEN [Suspect]
     Active Substance: NAPROXEN
     Indication: Product used for unknown indication
     Dosage: UNK
  2. MOUNJARO [Suspect]
     Active Substance: TIRZEPATIDE

REACTIONS (1)
  - Epistaxis [Recovering/Resolving]
